FAERS Safety Report 4293496-X (Version None)
Quarter: 2004Q1

REPORT INFORMATION
  Report Type: 
  Country: None (occurrence: None)
  Receive Date: 20040210
  Receipt Date: 20040126
  Transmission Date: 20041129
  Serious: Yes (Hospitalization)
  Sender: FDA-Public Use
  Company Number: 2004AP00535

PATIENT
  Age: 18 Year
  Sex: Female

DRUGS (3)
  1. MARCAINE [Suspect]
     Indication: ANAESTHESIA
     Dosage: 5 MG DAILY
     Dates: start: 20040123, end: 20040123
  2. FENTANYL [Concomitant]
  3. ISOTONIC SODIUM CHLORIDE SOLUTION [Concomitant]

REACTIONS (4)
  - HYPERVENTILATION [None]
  - HYPOAESTHESIA [None]
  - MOVEMENT DISORDER [None]
  - POST PROCEDURAL COMPLICATION [None]
